FAERS Safety Report 5048459-3 (Version None)
Quarter: 2006Q3

REPORT INFORMATION
  Report Type: 
  Country: None (occurrence: None)
  Receive Date: 20060705
  Receipt Date: 20060614
  Transmission Date: 20061208
  Serious: Yes (Hospitalization)
  Sender: FDA-Public Use
  Company Number: US200604004563

PATIENT
  Sex: Female

DRUGS (3)
  1. FORTEO [Suspect]
     Indication: OSTEOPOROSIS
     Dates: start: 20050701
  2. FORTEO [Concomitant]
  3. CITRACAL (CALCIUM CITRATE) [Concomitant]

REACTIONS (1)
  - NEPHROLITHIASIS [None]
